FAERS Safety Report 16081106 (Version 2)
Quarter: 2019Q1

REPORT INFORMATION
  Report Type: Spontaneous
  Country: FR (occurrence: FR)
  Receive Date: 20190316
  Receipt Date: 20190321
  Transmission Date: 20190418
  Serious: Yes (Hospitalization)
  Sender: FDA-Public Use
  Company Number: FR-ACCORD-113130

PATIENT
  Age: 71 Year
  Sex: Female
  Weight: 83 kg

DRUGS (15)
  1. RAMIPRIL. [Suspect]
     Active Substance: RAMIPRIL
     Indication: HYPERTENSION
     Route: 048
     Dates: end: 20181017
  2. SALBUTAMOL [Concomitant]
     Active Substance: ALBUTEROL
     Route: 055
  3. FLUINDIONE [Concomitant]
     Active Substance: FLUINDIONE
     Route: 048
  4. ZOLPIDEM [Concomitant]
     Active Substance: ZOLPIDEM\ZOLPIDEM TARTRATE
     Route: 048
  5. BISOPROLOL [Concomitant]
     Active Substance: BISOPROLOL
     Route: 048
  6. HUMALOG [Concomitant]
     Active Substance: INSULIN LISPRO
     Route: 058
  7. BROMAZEPAM [Concomitant]
     Active Substance: BROMAZEPAM
     Route: 048
  8. FUROSEMIDE. [Suspect]
     Active Substance: FUROSEMIDE
     Indication: CARDIAC FAILURE
     Route: 048
     Dates: end: 20181017
  9. AMOXICILLINE PANPHARMA [Suspect]
     Active Substance: AMOXICILLIN
     Indication: ENTEROCOCCAL INFECTION
     Route: 042
     Dates: start: 20181012, end: 20181018
  10. AMOXICILLIN/CLAVULANIC ACID [Suspect]
     Active Substance: AMOXICILLIN\CLAVULANIC ACID
     Indication: ENTEROCOCCAL INFECTION
     Dosage: 2 G, QID
     Route: 042
     Dates: start: 20181012, end: 20181018
  11. PANTOPRAZOLE [Concomitant]
     Active Substance: PANTOPRAZOLE
     Route: 048
  12. CEFTRIAXONE MYLAN [Suspect]
     Active Substance: CEFTRIAXONE
     Indication: ENTEROCOCCAL INFECTION
     Route: 042
     Dates: start: 20181012, end: 20181018
  13. LEVOCETIRIZINE/LEVOCETIRIZINE DIHYDROCHLORIDE [Concomitant]
     Route: 048
  14. LEVOTHYROX [Concomitant]
     Active Substance: LEVOTHYROXINE
     Route: 048
  15. SIMVASTATIN. [Concomitant]
     Active Substance: SIMVASTATIN
     Route: 048

REACTIONS (1)
  - Acute kidney injury [Recovered/Resolved]

NARRATIVE: CASE EVENT DATE: 20181012
